FAERS Safety Report 10677520 (Version 1)
Quarter: 2014Q4

REPORT INFORMATION
  Report Type: Spontaneous
  Country: DK (occurrence: DK)
  Receive Date: 20141228
  Receipt Date: 20141228
  Transmission Date: 20150529
  Serious: Yes (Hospitalization)
  Sender: FDA-Public Use
  Company Number: PHHY2014DK165916

PATIENT
  Sex: Female

DRUGS (1)
  1. LINDYNETTE [Suspect]
     Active Substance: ETHINYL ESTRADIOL\GESTODENE
     Indication: CONTRACEPTION
     Dosage: STYRKE: 75 + 30 MIKROGRAM
     Route: 048
     Dates: start: 2004, end: 201407

REACTIONS (8)
  - Insomnia [Recovered/Resolved]
  - Snoring [Recovered/Resolved]
  - Sleep disorder [Recovered/Resolved]
  - Fatigue [Recovered/Resolved]
  - Asthenia [Recovered/Resolved]
  - Sleep apnoea syndrome [Recovered/Resolved]
  - Muscle twitching [Recovered/Resolved]
  - Mood altered [Recovered/Resolved]
